FAERS Safety Report 18559750 (Version 1)
Quarter: 2020Q4

REPORT INFORMATION
  Report Type: Spontaneous
  Country: FR (occurrence: FR)
  Receive Date: 20201130
  Receipt Date: 20201130
  Transmission Date: 20210114
  Serious: Yes (Hospitalization, Other)
  Sender: FDA-Public Use
  Company Number: FR-PFIZER INC-2020462230

PATIENT
  Age: 51 Year
  Sex: Male

DRUGS (2)
  1. AXITINIB [Suspect]
     Active Substance: AXITINIB
     Indication: RENAL CANCER METASTATIC
     Dosage: UNK
     Dates: start: 20200620, end: 20201007
  2. KEYTRUDA [Suspect]
     Active Substance: PEMBROLIZUMAB
     Indication: RENAL CANCER METASTATIC
     Dosage: UNK
     Dates: start: 202006

REACTIONS (6)
  - Acute kidney injury [Unknown]
  - Confusional state [Unknown]
  - Central nervous system vasculitis [Unknown]
  - Coronavirus infection [Unknown]
  - Hypertension [Unknown]
  - Renal vasculitis [Unknown]

NARRATIVE: CASE EVENT DATE: 202010
